FAERS Safety Report 12526161 (Version 2)
Quarter: 2016Q3

REPORT INFORMATION
  Report Type: Spontaneous
  Country: US (occurrence: US)
  Receive Date: 20160705
  Receipt Date: 20160707
  Transmission Date: 20161109
  Serious: No
  Sender: FDA-Public Use
  Company Number: US-PFIZER INC-2016317810

PATIENT
  Sex: Female

DRUGS (4)
  1. LOPID [Suspect]
     Active Substance: GEMFIBROZIL
     Dosage: UNK
  2. LIPITOR [Suspect]
     Active Substance: ATORVASTATIN CALCIUM
     Dosage: UNK
  3. QUESTRAN [Suspect]
     Active Substance: CHOLESTYRAMINE
     Dosage: UNK
  4. VASOTEC [Suspect]
     Active Substance: ENALAPRIL MALEATE
     Dosage: UNK

REACTIONS (1)
  - Drug hypersensitivity [Unknown]
